FAERS Safety Report 8651340 (Version 3)
Quarter: 2012Q4

REPORT INFORMATION
  Report Type: Report from Study
  Country: CA (occurrence: CA)
  Receive Date: 20120705
  Receipt Date: 20120924
  Transmission Date: 20130627
  Serious: Yes (Hospitalization, Other)
  Sender: FDA-Public Use
  Company Number: CA-ABBOTT-12P-028-0952454-00

PATIENT
  Age: 15 Year
  Sex: Female
  Weight: 49.4 kg

DRUGS (1)
  1. HUMIRA 40 MG/ 0.8 ML PRE-FILLED SYRINGE [Suspect]
     Indication: CROHN^S DISEASE
     Route: 058
     Dates: start: 201203

REACTIONS (2)
  - Intestinal obstruction [Recovered/Resolved]
  - Ileal stenosis [Unknown]
